FAERS Safety Report 19841666 (Version 2)
Quarter: 2021Q3

REPORT INFORMATION
  Report Type: Spontaneous
  Country: IT (occurrence: IT)
  Receive Date: 20210916
  Receipt Date: 20210923
  Transmission Date: 20211014
  Serious: Yes (Other)
  Sender: FDA-Public Use
  Company Number: IT-MYLANLABS-2021M1061787

PATIENT
  Age: 11 Year
  Sex: Male

DRUGS (11)
  1. VINCRISTINE [Suspect]
     Active Substance: VINCRISTINE
     Indication: MEDULLOBLASTOMA
     Dosage: 1.5 MILLIGRAM/SQ. METER
     Route: 065
  2. VINCRISTINE [Suspect]
     Active Substance: VINCRISTINE
     Dosage: UNK
     Route: 065
  3. ETOPOSIDE MYLAN [Suspect]
     Active Substance: ETOPOSIDE
     Dosage: 200 MILLIGRAM/SQ. METER
     Route: 065
  4. TEMOZOLOMIDE. [Suspect]
     Active Substance: TEMOZOLOMIDE
     Indication: MEDULLOBLASTOMA RECURRENT
     Dosage: 180 MILLIGRAM/SQ. METER
     Route: 065
  5. METHOTREXATE. [Suspect]
     Active Substance: METHOTREXATE
     Dosage: 8 GRAM PER SQUARE METRE
     Route: 042
  6. ETOPOSIDE MYLAN [Suspect]
     Active Substance: ETOPOSIDE
     Indication: MEDULLOBLASTOMA
     Dosage: 25 MILLIGRAM/SQ. METER, QD
     Route: 065
  7. ETOPOSIDE MYLAN [Suspect]
     Active Substance: ETOPOSIDE
     Indication: RADIOSENSITISATION THERAPY
     Dosage: 150 MILLIGRAM/SQ. METER
     Route: 065
  8. CYCLOPHOSPHAMIDE. [Suspect]
     Active Substance: CYCLOPHOSPHAMIDE
     Indication: MEDULLOBLASTOMA
     Dosage: 4 GRAM PER SQUARE METREV (DAY 1), MOBILIZING CYCLE
     Route: 065
  9. METHOTREXATE. [Suspect]
     Active Substance: METHOTREXATE
     Indication: MEDULLOBLASTOMA
     Dosage: 12 MILLIGRAM, CYCLE
     Route: 037
  10. CARBOPLATIN. [Suspect]
     Active Substance: CARBOPLATIN
     Indication: MEDULLOBLASTOMA
     Dosage: 600 MILLIGRAM/SQ. METER
     Route: 065
  11. THIOTEPA. [Concomitant]
     Active Substance: THIOTEPA
     Indication: MEDULLOBLASTOMA
     Dosage: 300 MILLIGRAM/SQ. METER
     Route: 065

REACTIONS (9)
  - Abdominal pain [Recovering/Resolving]
  - Oropharyngeal pain [Recovering/Resolving]
  - Pain in extremity [Recovering/Resolving]
  - Product use in unapproved indication [Unknown]
  - Febrile neutropenia [Recovered/Resolved]
  - Nausea [Recovered/Resolved]
  - Fatigue [Unknown]
  - Trismus [Recovering/Resolving]
  - Agitation [Recovered/Resolved]
